FAERS Safety Report 18172041 (Version 1)
Quarter: 2020Q3

REPORT INFORMATION
  Report Type: Spontaneous
  Country: US (occurrence: US)
  Receive Date: 20200820
  Receipt Date: 20200820
  Transmission Date: 20201103
  Serious: Yes (Hospitalization, Other)
  Sender: FDA-Public Use
  Company Number: US-AUROBINDO-AUR-APL-2020-040132

PATIENT
  Age: 25 Year
  Sex: Female

DRUGS (3)
  1. PROMETHAZINE [Suspect]
     Active Substance: PROMETHAZINE HYDROCHLORIDE
     Indication: PRODUCT USED FOR UNKNOWN INDICATION
     Dosage: 1.5 GRAM (17 MG/KG)
     Route: 048
  2. DILTIAZEM. [Suspect]
     Active Substance: DILTIAZEM
     Indication: PRODUCT USED FOR UNKNOWN INDICATION
     Dosage: 180 MILLIGRAM (NINETY TABLETS, TOTAL DOSE 16.2 GRAMS, 186 MG/KG))
     Route: 048
  3. TRAZODONE [Suspect]
     Active Substance: TRAZODONE HYDROCHLORIDE
     Indication: PRODUCT USED FOR UNKNOWN INDICATION
     Dosage: 3 GRAM (35 MG/KG)
     Route: 048

REACTIONS (12)
  - Hypotension [Unknown]
  - Mental status changes [Unknown]
  - Tachycardia [Unknown]
  - Encephalopathy [Unknown]
  - Multiple organ dysfunction syndrome [Recovered/Resolved]
  - Electrocardiogram QT prolonged [Unknown]
  - Suicide attempt [Unknown]
  - Overdose [Unknown]
  - Sinus tachycardia [Unknown]
  - Somnolence [Unknown]
  - Lactic acidosis [Recovered/Resolved]
  - Vasoplegia syndrome [Unknown]
